FAERS Safety Report 14384705 (Version 1)
Quarter: 2018Q1

REPORT INFORMATION
  Report Type: Spontaneous
  Country: PL (occurrence: PL)
  Receive Date: 20180115
  Receipt Date: 20180115
  Transmission Date: 20180509
  Serious: Yes (Death, Other)
  Sender: FDA-Public Use
  Company Number: PL-IPSEN BIOPHARMACEUTICALS, INC.-2018-00504

PATIENT
  Age: 57 Year
  Sex: Male

DRUGS (4)
  1. ONIVYDE [Suspect]
     Active Substance: IRINOTECAN HYDROCHLORIDE
     Indication: METASTASES TO LIVER
     Route: 065
  2. ONIVYDE [Suspect]
     Active Substance: IRINOTECAN HYDROCHLORIDE
     Indication: OFF LABEL USE
  3. ULTRAVIST [Concomitant]
     Active Substance: IOPROMIDE
  4. ATROPINE. [Concomitant]
     Active Substance: ATROPINE

REACTIONS (7)
  - Abdominal pain [Unknown]
  - Metastatic neoplasm [Unknown]
  - Disease progression [Unknown]
  - Decreased appetite [Unknown]
  - Death [Fatal]
  - Off label use [Unknown]
  - Therapy partial responder [Unknown]

NARRATIVE: CASE EVENT DATE: 201608
